FAERS Safety Report 20139998 (Version 3)
Quarter: 2022Q1

REPORT INFORMATION
  Report Type: Spontaneous
  Country: PT (occurrence: PT)
  Receive Date: 20211202
  Receipt Date: 20220118
  Transmission Date: 20220423
  Serious: Yes (Hospitalization)
  Sender: FDA-Public Use
  Company Number: PT-BAYER-2021A256686

PATIENT
  Age: 37 Year
  Sex: Female

DRUGS (3)
  1. NAPROXEN SODIUM [Suspect]
     Active Substance: NAPROXEN SODIUM
     Dosage: 10000 MG, ONCE
  2. DIETARY SUPPLEMENT [Suspect]
     Active Substance: DIETARY SUPPLEMENT
     Dosage: 30 DF, ONCE
  3. CYCLOBENZAPRINE HYDROCHLORIDE [Suspect]
     Active Substance: CYCLOBENZAPRINE HYDROCHLORIDE
     Indication: Intentional overdose
     Dosage: 10 DF, ONCE

REACTIONS (6)
  - Autoimmune haemolytic anaemia [Recovering/Resolving]
  - Thrombocytopenia [Not Recovered/Not Resolved]
  - Intentional overdose [Recovering/Resolving]
  - Drug interaction [None]
  - Toxicity to various agents [None]
  - Serotonin syndrome [None]
